FAERS Safety Report 7164346-9 (Version None)
Quarter: 2010Q4

REPORT INFORMATION
  Report Type: 
  Country: None (occurrence: None)
  Receive Date: 20101215
  Receipt Date: 20101206
  Transmission Date: 20110411
  Serious: Yes (Other)
  Sender: FDA-Public Use
  Company Number: NZ-ABBOTT-10P-118-0682903-00

PATIENT
  Age: 54 Year
  Sex: Female
  Weight: 97 kg

DRUGS (3)
  1. HUMIRA [Suspect]
     Indication: DERMATITIS
     Route: 058
     Dates: start: 20100416
  2. HUMIRA [Suspect]
     Indication: PSORIASIS
     Route: 058
  3. HUMIRA [Suspect]
     Route: 058
     Dates: end: 20101015

REACTIONS (7)
  - COUGH [None]
  - DYSPNOEA [None]
  - HEADACHE [None]
  - LOWER RESPIRATORY TRACT INFECTION [None]
  - NEUROLOGICAL SYMPTOM [None]
  - PRODUCTIVE COUGH [None]
  - WHEEZING [None]
